FAERS Safety Report 7860831-2 (Version None)
Quarter: 2011Q4

REPORT INFORMATION
  Report Type: 
  Country: None (occurrence: None)
  Receive Date: 20111027
  Receipt Date: 20111012
  Transmission Date: 20120403
  Serious: Yes (Hospitalization)
  Sender: FDA-Public Use
  Company Number: US-BAYER-2011-050462

PATIENT
  Age: 21 Year
  Sex: Female
  Weight: 90.703 kg

DRUGS (3)
  1. TOPIRAMATE [Concomitant]
     Dosage: 25 MG, UNK
     Dates: start: 20090501
  2. YASMIN [Suspect]
     Dosage: UNK
     Dates: start: 20080101, end: 20090101
  3. DROSPIRENONE AND ETHINYL ESTRADIOL [Suspect]
     Dosage: UNK
     Dates: start: 20080101, end: 20090101

REACTIONS (6)
  - INJURY [None]
  - GALLBLADDER DISORDER [None]
  - GALLBLADDER CHOLESTEROLOSIS [None]
  - CHOLECYSTITIS CHRONIC [None]
  - CHOLELITHIASIS [None]
  - PAIN [None]
